FAERS Safety Report 15567048 (Version 2)
Quarter: 2018Q4

REPORT INFORMATION
  Report Type: Spontaneous
  Country: JP (occurrence: JP)
  Receive Date: 20181030
  Receipt Date: 20181031
  Transmission Date: 20190205
  Serious: No
  Sender: FDA-Public Use
  Company Number: JP-009507513-1810JPN012871

PATIENT
  Age: 70 Year
  Sex: Female

DRUGS (2)
  1. ALENDRONATE SODIUM. [Suspect]
     Active Substance: ALENDRONATE SODIUM
     Dosage: 35 MILLIGRAM, PER WEEK
     Route: 048
  2. EDIROL [Concomitant]
     Active Substance: ELDECALCITOL
     Dosage: UNK

REACTIONS (3)
  - Feeling abnormal [Unknown]
  - Peripheral swelling [Unknown]
  - Haemorrhage subcutaneous [Unknown]
